FAERS Safety Report 20091777 (Version 3)
Quarter: 2021Q4

REPORT INFORMATION
  Report Type: Spontaneous
  Country: US (occurrence: US)
  Receive Date: 20211119
  Receipt Date: 20211130
  Transmission Date: 20220303
  Serious: No
  Sender: FDA-Public Use
  Company Number: US-BAYER-2021A251316

PATIENT
  Sex: Female

DRUGS (1)
  1. CLIMARA [Suspect]
     Active Substance: ESTRADIOL
     Dosage: UNK
     Route: 062

REACTIONS (5)
  - Fibromyalgia [None]
  - Influenza [None]
  - Gastrooesophageal reflux disease [None]
  - Autonomic nervous system imbalance [None]
  - Absorbable device issue [None]
